FAERS Safety Report 10040472 (Version 1)
Quarter: 2014Q1

REPORT INFORMATION
  Report Type: Spontaneous
  Country: FR (occurrence: FR)
  Receive Date: 20140327
  Receipt Date: 20140327
  Transmission Date: 20141002
  Serious: Yes (Hospitalization)
  Sender: FDA-Public Use
  Company Number: FR-ROCHE-1369123

PATIENT
  Age: 63 Year
  Sex: Female

DRUGS (15)
  1. PERJETA [Suspect]
     Indication: HER-2 POSITIVE BREAST CANCER
     Route: 042
     Dates: start: 20140210
  2. PERJETA [Suspect]
     Route: 050
     Dates: start: 20140304
  3. HERCEPTIN [Suspect]
     Indication: HER-2 POSITIVE BREAST CANCER
     Route: 042
     Dates: start: 201209
  4. HERCEPTIN [Suspect]
     Route: 042
     Dates: start: 20140304
  5. METHYLPREDNISOLONE [Suspect]
     Indication: HER-2 POSITIVE BREAST CANCER
     Route: 042
     Dates: start: 20140207, end: 20140219
  6. DOCETAXEL [Suspect]
     Indication: HER-2 POSITIVE BREAST CANCER
     Route: 042
     Dates: start: 201209
  7. DOCETAXEL [Suspect]
     Route: 042
     Dates: start: 20140304
  8. ALPRAZOLAM [Concomitant]
     Dosage: MYLAN
     Route: 065
  9. DUPHALAC [Concomitant]
  10. AMLODIPINE [Concomitant]
  11. OXYNORM [Concomitant]
  12. ZARZIO [Concomitant]
  13. OXYNORMORO [Concomitant]
  14. OXYCONTIN [Concomitant]
  15. LOXEN [Concomitant]

REACTIONS (1)
  - Dermo-hypodermitis [Recovered/Resolved]
